FAERS Safety Report 17237104 (Version 1)
Quarter: 2020Q1

REPORT INFORMATION
  Report Type: Spontaneous
  Country: US (occurrence: US)
  Receive Date: 20200106
  Receipt Date: 20200106
  Transmission Date: 20200409
  Serious: No
  Sender: FDA-Public Use
  Company Number: US-PFIZER INC-2019546130

PATIENT
  Age: 84 Year
  Sex: Female

DRUGS (1)
  1. PREMARIN [Suspect]
     Active Substance: ESTROGENS, CONJUGATED
     Dosage: 0.05 G, 3 TIMES A WEEK

REACTIONS (3)
  - Off label use [Unknown]
  - Product use issue [Unknown]
  - Hypoacusis [Unknown]
